FAERS Safety Report 5527454-1 (Version None)
Quarter: 2007Q4

REPORT INFORMATION
  Report Type: 
  Country: None (occurrence: None)
  Receive Date: 20071123
  Receipt Date: 20071107
  Transmission Date: 20080405
  Serious: Yes (Life-Threatening, Other)
  Sender: FDA-Public Use
  Company Number: VER_00086_2007

PATIENT
  Age: 24 Month
  Sex: Female
  Weight: 14.5151 kg

DRUGS (1)
  1. TWINJECT [Suspect]
     Indication: ANAPHYLACTIC REACTION
     Dosage: 0.15 MG INTRAMUSCULAR
     Route: 030
     Dates: start: 20071001

REACTIONS (2)
  - DEVICE MALFUNCTION [None]
  - PHARMACEUTICAL PRODUCT COMPLAINT [None]
